FAERS Safety Report 6137706-2 (Version None)
Quarter: 2009Q1

REPORT INFORMATION
  Report Type: 
  Country: None (occurrence: None)
  Receive Date: 20090331
  Receipt Date: 20081207
  Transmission Date: 20090719
  Serious: Yes (Other)
  Sender: FDA-Public Use
  Company Number: US-KINGPHARMUSA00001-K200801386

PATIENT

DRUGS (1)
  1. THROMBIN NOS [Suspect]
     Indication: CARDIAC OPERATION

REACTIONS (1)
  - HAEMORRHAGE [None]
